FAERS Safety Report 5431338-7 (Version None)
Quarter: 2007Q3

REPORT INFORMATION
  Report Type: 
  Country: None (occurrence: None)
  Receive Date: 20070830
  Receipt Date: 20070423
  Transmission Date: 20080115
  Serious: No
  Sender: FDA-Public Use
  Company Number: A0648577A

PATIENT
  Age: 51 Year
  Sex: Female

DRUGS (5)
  1. WELLBUTRIN XL [Suspect]
     Indication: DEPRESSION
     Route: 048
  2. TOPAMAX [Concomitant]
     Indication: MIGRAINE
     Dosage: 200MG AT NIGHT
     Route: 048
  3. ATIVAN [Concomitant]
     Indication: ANXIETY
     Dosage: 2MG AS REQUIRED
     Route: 048
  4. RELPAX [Concomitant]
     Indication: MIGRAINE
     Dosage: 40MG AS REQUIRED
     Route: 048
  5. LUNESTA [Concomitant]
     Route: 048
     Dates: start: 20070422

REACTIONS (1)
  - INSOMNIA [None]
